FAERS Safety Report 23439855 (Version 2)
Quarter: 2025Q1

REPORT INFORMATION
  Report Type: Spontaneous
  Country: US (occurrence: US)
  Receive Date: 20240124
  Receipt Date: 20250313
  Transmission Date: 20250408
  Serious: No
  Sender: JOHNSON AND JOHNSON
  Company Number: US-VIIV HEALTHCARE LIMITED-US2024AMR009070

PATIENT
  Age: 56 Year
  Sex: Male

DRUGS (6)
  1. RILPIVIRINE [Suspect]
     Active Substance: RILPIVIRINE
     Indication: High risk sexual behaviour
     Dosage: UNK UNK, Q2M,CABOTEGRAVIR 600 MG (3 ML) AND RILPIVIRINE 900 MG (3ML)
     Route: 030
     Dates: start: 202212
  2. CABOTEGRAVIR [Suspect]
     Active Substance: CABOTEGRAVIR
     Indication: High risk sexual behaviour
     Dosage: UNK UNK, Q2M,CABOTEGRAVIR 600 MG (3 ML) AND RILPIVIRINE 900 MG (3ML)
     Route: 030
     Dates: start: 202212
  3. DILTIAZEM 12HR [Concomitant]
     Indication: Product used for unknown indication
     Dosage: UNK UNK, BID, ER 60 MG CAP.SR 12H
     Route: 065
  4. LOSARTAN POTASSIUM [Concomitant]
     Active Substance: LOSARTAN POTASSIUM
     Indication: Product used for unknown indication
  5. ALEVE [Concomitant]
     Active Substance: NAPROXEN SODIUM
     Indication: Product used for unknown indication
  6. ZYRTEC [Concomitant]
     Active Substance: CETIRIZINE HYDROCHLORIDE
     Indication: Product used for unknown indication

REACTIONS (4)
  - Injection site pain [Unknown]
  - Multiple allergies [Unknown]
  - Rhinorrhoea [Unknown]
  - Off label use [Unknown]
